FAERS Safety Report 21602744 (Version 1)
Quarter: 2022Q4

REPORT INFORMATION
  Report Type: Report from Study
  Country: IT (occurrence: IT)
  Receive Date: 20221116
  Receipt Date: 20221116
  Transmission Date: 20230113
  Serious: Yes (Other)
  Sender: FDA-Public Use
  Company Number: IT-Merck Healthcare KGaA-9364303

PATIENT
  Age: 65 Year
  Sex: Male
  Weight: 76 kg

DRUGS (12)
  1. IRINOTECAN HYDROCHLORIDE [Suspect]
     Active Substance: IRINOTECAN HYDROCHLORIDE
     Indication: Colorectal cancer metastatic
     Dosage: 230 MG
     Dates: start: 20211022
  2. IRINOTECAN HYDROCHLORIDE [Suspect]
     Active Substance: IRINOTECAN HYDROCHLORIDE
     Dosage: 230 MG
     Dates: start: 20220314
  3. AVELUMAB [Suspect]
     Active Substance: AVELUMAB
     Indication: Colorectal cancer metastatic
     Dosage: 800 MG
     Dates: start: 20211022
  4. AVELUMAB [Suspect]
     Active Substance: AVELUMAB
     Dosage: 800 MG
     Dates: start: 20220314, end: 20220328
  5. AVELUMAB [Suspect]
     Active Substance: AVELUMAB
     Dosage: 800 MG
     Dates: start: 20220706
  6. CETUXIMAB [Suspect]
     Active Substance: CETUXIMAB
     Indication: Colorectal cancer metastatic
     Dosage: 940 MG
     Dates: start: 20211022
  7. CETUXIMAB [Suspect]
     Active Substance: CETUXIMAB
     Dosage: 750 MG
     Dates: start: 20220314
  8. OXALIPLATIN [Suspect]
     Active Substance: OXALIPLATIN
     Indication: Colorectal cancer metastatic
     Dosage: 150 MG
     Dates: start: 20211022
  9. OXALIPLATIN [Suspect]
     Active Substance: OXALIPLATIN
     Dosage: 150 MG
     Dates: start: 20220314
  10. FLUOROURACIL [Suspect]
     Active Substance: FLUOROURACIL
     Indication: Colorectal cancer metastatic
     Dosage: 4400 MG
     Dates: start: 20211022
  11. FLUOROURACIL [Suspect]
     Active Substance: FLUOROURACIL
     Dosage: 4400 MG
     Dates: start: 20220314
  12. PANTOPROL [Concomitant]
     Indication: Prophylaxis
     Dosage: 20 MG, 1X/DAY
     Route: 048

REACTIONS (1)
  - Pneumonitis [Recovered/Resolved]

NARRATIVE: CASE EVENT DATE: 20220328
